FAERS Safety Report 7950759-1 (Version None)
Quarter: 2011Q4

REPORT INFORMATION
  Report Type: 
  Country: None (occurrence: None)
  Receive Date: 20111123
  Receipt Date: 20111107
  Transmission Date: 20120403
  Serious: Yes (Death)
  Sender: FDA-Public Use
  Company Number: UTC-012130

PATIENT
  Age: 92 Year
  Sex: Female
  Weight: 58.4 kg

DRUGS (6)
  1. VIAGRA [Concomitant]
  2. DIGOXIN [Concomitant]
  3. TYVASO [Suspect]
     Indication: PULMONARY ARTERIAL HYPERTENSION
     Dosage: 216 MCG (54 MCG, 4 IN 1 D), INHALATION
     Route: 055
     Dates: start: 20100513
  4. DIURETICS (DIURETICS) [Concomitant]
  5. ASPIRIN [Concomitant]
  6. OXYGEN (OXYGEN) [Concomitant]

REACTIONS (1)
  - DEATH [None]
